FAERS Safety Report 16202451 (Version 2)
Quarter: 2019Q2

REPORT INFORMATION
  Report Type: Spontaneous
  Country: US (occurrence: US)
  Receive Date: 20190416
  Receipt Date: 20190514
  Transmission Date: 20190711
  Serious: No
  Sender: FDA-Public Use
  Company Number: US-PFIZER INC-2019156882

PATIENT
  Sex: Female
  Weight: 79.38 kg

DRUGS (1)
  1. NEURONTIN [Suspect]
     Active Substance: GABAPENTIN
     Dosage: UNK

REACTIONS (4)
  - Toxicity to various agents [Unknown]
  - Hypotension [Unknown]
  - Heart rate decreased [Unknown]
  - Drug level increased [Unknown]
